FAERS Safety Report 7070789-4 (Version None)
Quarter: 2010Q4

REPORT INFORMATION
  Report Type: 
  Country: None (occurrence: None)
  Receive Date: 20101027
  Receipt Date: 20101027
  Transmission Date: 20110411
  Serious: Yes (Other)
  Sender: FDA-Public Use
  Company Number: None

PATIENT
  Age: 4 Month
  Sex: Male
  Weight: 6.1236 kg

DRUGS (1)
  1. HYLAND'S TEETHING TABLETS 1 TABLET HYLAND'S [Suspect]
     Indication: TEETHING
     Dosage: 2 TABLETS EVERY 6 HOURS PO
     Route: 048
     Dates: start: 20101020, end: 20101021

REACTIONS (1)
  - VOMITING [None]
